FAERS Safety Report 23520718 (Version 1)
Quarter: 2024Q1

REPORT INFORMATION
  Report Type: Spontaneous
  Country: MA (occurrence: MA)
  Receive Date: 20240214
  Receipt Date: 20240214
  Transmission Date: 20240410
  Serious: Yes (Other)
  Sender: FDA-Public Use
  Company Number: MA-SA-2024SA043428

PATIENT
  Age: 15 Year
  Sex: Female

DRUGS (1)
  1. CORTIZONE 10 EASY RELIEF [Suspect]
     Active Substance: HYDROCORTISONE
     Indication: Triple A syndrome
     Route: 065

REACTIONS (9)
  - Mycobacterium fortuitum infection [Recovering/Resolving]
  - Productive cough [Recovering/Resolving]
  - Pyrexia [Recovering/Resolving]
  - Sputum purulent [Recovering/Resolving]
  - Asthenia [Recovering/Resolving]
  - Decreased appetite [Recovering/Resolving]
  - General physical health deterioration [Recovering/Resolving]
  - Regurgitation [Recovering/Resolving]
  - Pneumonia aspiration [Recovering/Resolving]
